FAERS Safety Report 25275555 (Version 5)
Quarter: 2025Q3

REPORT INFORMATION
  Report Type: Report from Study
  Country: EU (occurrence: EU)
  Receive Date: 20250506
  Receipt Date: 20250722
  Transmission Date: 20251021
  Serious: No
  Sender: BIOGEN
  Company Number: EU-BIOGEN-2023BI01188236

PATIENT
  Age: 61 Year
  Sex: Female
  Weight: 98 kg

DRUGS (4)
  1. TOFERSEN [Suspect]
     Active Substance: TOFERSEN
     Indication: Amyotrophic lateral sclerosis
     Route: 050
     Dates: start: 20220928
  2. RILUTEK [Concomitant]
     Active Substance: RILUZOLE
     Indication: Amyotrophic lateral sclerosis
     Route: 050
     Dates: start: 20190618
  3. LIORESAL [Concomitant]
     Active Substance: BACLOFEN
     Indication: Muscle spasms
     Route: 050
  4. TEGRETOL [Concomitant]
     Active Substance: CARBAMAZEPINE
     Indication: Muscle spasms
     Route: 050

REACTIONS (15)
  - Blood creatine phosphokinase increased [Not Recovered/Not Resolved]
  - Full blood count abnormal [Unknown]
  - Dyspnoea exertional [Not Recovered/Not Resolved]
  - Blood creatine phosphokinase abnormal [Not Recovered/Not Resolved]
  - White blood cell count decreased [Unknown]
  - Constipation [Not Recovered/Not Resolved]
  - Weight increased [Not Recovered/Not Resolved]
  - Skin lesion [Not Recovered/Not Resolved]
  - Dyspnoea [Not Recovered/Not Resolved]
  - Muscle contractions involuntary [Not Recovered/Not Resolved]
  - Gait disturbance [Unknown]
  - Protein total increased [Unknown]
  - Red blood cell count abnormal [Unknown]
  - Musculoskeletal stiffness [Not Recovered/Not Resolved]
  - Myalgia [Unknown]

NARRATIVE: CASE EVENT DATE: 20221021
